FAERS Safety Report 4782558-6 (Version None)
Quarter: 2005Q3

REPORT INFORMATION
  Report Type: 
  Country: None (occurrence: None)
  Receive Date: 20050929
  Receipt Date: 20050315
  Transmission Date: 20060218
  Serious: No
  Sender: FDA-Public Use
  Company Number: US-GLAXOSMITHKLINE-A0549859A

PATIENT
  Age: 57 Year
  Sex: Female

DRUGS (8)
  1. COREG [Suspect]
     Indication: HYPERTENSION
     Dosage: 12.5MG TWICE PER DAY
     Route: 048
     Dates: start: 20050301
  2. PROCARDIA [Concomitant]
  3. HYZAAR [Concomitant]
  4. LISINOPRIL [Concomitant]
  5. PROTONIX [Concomitant]
  6. PREMARIN [Concomitant]
  7. PROVERA [Concomitant]
  8. INSULIN [Concomitant]

REACTIONS (2)
  - DIARRHOEA [None]
  - JOINT SWELLING [None]
